FAERS Safety Report 10707203 (Version 1)
Quarter: 2015Q1

REPORT INFORMATION
  Report Type: Spontaneous
  Country: US (occurrence: None)
  Receive Date: 20150112
  Receipt Date: 20150112
  Transmission Date: 20150721
  Serious: Yes (Other)
  Sender: FDA-Public Use
  Company Number: None

PATIENT
  Age: 43 Year
  Sex: Female
  Weight: 83.92 kg

DRUGS (1)
  1. TYLENOL WITH CODEINE [Suspect]
     Active Substance: ACETAMINOPHEN\CODEINE PHOSPHATE
     Indication: LIGAMENT SPRAIN
     Dosage: 1 TABLET
     Route: 048
     Dates: start: 20150109, end: 20150111

REACTIONS (1)
  - Migraine [None]

NARRATIVE: CASE EVENT DATE: 20150110
